FAERS Safety Report 6782373-8 (Version None)
Quarter: 2010Q2

REPORT INFORMATION
  Report Type: 
  Country: None (occurrence: None)
  Receive Date: 20100621
  Receipt Date: 20100611
  Transmission Date: 20101027
  Serious: Yes (Disabling)
  Sender: FDA-Public Use
  Company Number: FR-PFIZER INC-2010073382

PATIENT
  Age: 59 Year
  Sex: Female

DRUGS (2)
  1. TAHOR [Suspect]
     Dosage: UNK
     Route: 048
     Dates: start: 20060101, end: 20091018
  2. ARIMIDEX [Suspect]
     Dosage: UNK
     Route: 048
     Dates: start: 20090601, end: 20090918

REACTIONS (2)
  - ARTHRALGIA [None]
  - ASTHENIA [None]
